FAERS Safety Report 24602944 (Version 1)
Quarter: 2024Q4

REPORT INFORMATION
  Report Type: Spontaneous
  Country: TR (occurrence: TR)
  Receive Date: 20241111
  Receipt Date: 20241111
  Transmission Date: 20250114
  Serious: Yes (Other)
  Sender: NOVARTIS
  Company Number: TR-002147023-NVSC2024TR216346

PATIENT
  Age: 30 Year
  Sex: Female

DRUGS (4)
  1. LAPATINIB [Suspect]
     Active Substance: LAPATINIB
     Indication: Ependymoma
     Dosage: 1250 MG, QD
     Route: 065
     Dates: start: 202111
  2. TEMOZOLOMIDE [Suspect]
     Active Substance: TEMOZOLOMIDE
     Indication: Ependymoma
     Dosage: 150 MG/M2, 5?DAYS BETWEEN THE DAY?10 AND 14; EVERY 28 DAYS CYCLE
     Route: 065
     Dates: start: 201807
  3. TEMOZOLOMIDE [Suspect]
     Active Substance: TEMOZOLOMIDE
     Dosage: AS FIFTH LINE TREATMENT
     Route: 065
     Dates: start: 202108, end: 202110
  4. TEMOZOLOMIDE [Suspect]
     Active Substance: TEMOZOLOMIDE
     Dosage: 125 MG/M2, QD, 1ST WEEK AND 3RD WEEK EVERY DAY, EVERY 28 DAYS
     Route: 065
     Dates: start: 202111

REACTIONS (3)
  - Ependymoma [Unknown]
  - Malignant neoplasm progression [Unknown]
  - Product use in unapproved indication [Unknown]
